FAERS Safety Report 9524013 (Version 1)
Quarter: 2013Q3

REPORT INFORMATION
  Report Type: Spontaneous
  Country: IN (occurrence: None)
  Receive Date: 20130912
  Receipt Date: 20130912
  Transmission Date: 20140515
  Serious: Yes (Hospitalization)
  Sender: FDA-Public Use
  Company Number: 2013PL1018949

PATIENT
  Sex: 0

DRUGS (1)
  1. CYPROHEPTADINE [Suspect]

REACTIONS (1)
  - Poisoning [None]
